FAERS Safety Report 15669478 (Version 1)
Quarter: 2018Q4

REPORT INFORMATION
  Report Type: Report from Study
  Country: US (occurrence: US)
  Receive Date: 20181129
  Receipt Date: 20181129
  Transmission Date: 20190205
  Serious: Yes (Disabling, Other)
  Sender: FDA-Public Use
  Company Number: US-TAIHO ONCOLOGY  INC-EU-2018-02089

PATIENT
  Age: 73 Year
  Sex: Male
  Weight: 66.5 kg

DRUGS (15)
  1. POTASSIUM [Concomitant]
     Active Substance: POTASSIUM
     Dosage: NI
  2. LIPITOR [Concomitant]
     Active Substance: ATORVASTATIN CALCIUM
     Dosage: NI
  3. DRONABINOL. [Concomitant]
     Active Substance: DRONABINOL
     Dosage: NI
  4. PROCHLORPERAZINE. [Concomitant]
     Active Substance: PROCHLORPERAZINE
     Dosage: NI
  5. DILAUDID [Concomitant]
     Active Substance: HYDROMORPHONE HYDROCHLORIDE
     Dosage: NI
  6. CENTRUM [Concomitant]
     Active Substance: VITAMINS
     Dosage: NI
  7. PREDNISONE. [Concomitant]
     Active Substance: PREDNISONE
     Dosage: NI
  8. AMBIEN [Concomitant]
     Active Substance: ZOLPIDEM TARTRATE
     Dosage: NI
  9. SLOW MAG [Concomitant]
     Active Substance: MAGNESIUM CHLORIDE
     Dosage: NI
  10. LONSURF [Suspect]
     Active Substance: TIPIRACIL HYDROCHLORIDE\TRIFLURIDINE
     Indication: COLON CANCER
     Dosage: CURRENT CYCLE 1
     Route: 048
     Dates: start: 20181016, end: 20181028
  11. XARELTO [Concomitant]
     Active Substance: RIVAROXABAN
     Dosage: NI
  12. PROBIOTIC [Concomitant]
     Active Substance: PROBIOTICS NOS
     Dosage: NI
  13. METOPROLOL. [Concomitant]
     Active Substance: METOPROLOL
     Dosage: NI
  14. DOXYCYCLINE. [Concomitant]
     Active Substance: DOXYCYCLINE
     Dosage: NI
  15. MORPHINE [Concomitant]
     Active Substance: MORPHINE
     Dosage: NI

REACTIONS (2)
  - Wound infection [Not Recovered/Not Resolved]
  - Cerebrovascular accident [Unknown]

NARRATIVE: CASE EVENT DATE: 20181029
